FAERS Safety Report 6244343-8 (Version None)
Quarter: 2009Q2

REPORT INFORMATION
  Report Type: 
  Country: None (occurrence: None)
  Receive Date: 20090625
  Receipt Date: 20090615
  Transmission Date: 20091009
  Serious: Yes (Hospitalization)
  Sender: FDA-Public Use
  Company Number: IT-ROCHE-634435

PATIENT
  Sex: Female
  Weight: 75 kg

DRUGS (12)
  1. CAPECITABINE [Suspect]
     Dosage: DOSING FREQ: DAY 1-DAY 14, ROUTE:OS,DOSAGE FORM: VIAL; PERMANENTLY DISCONTINUED.
     Route: 048
     Dates: start: 20090406, end: 20090623
  2. BEVACIZUMAB [Suspect]
     Dosage: DOSING FREQ: Q3W, DOSAGE FORM: VIAL; PERMANENTLY DISCONTINUED, ROUTE:IV NOS
     Route: 042
     Dates: start: 20090406, end: 20090623
  3. OXALIPLATINUM [Suspect]
     Dosage: DOSING FREQ: Q3W, DOSAGE FORM: VIAL; PERMANENTLY DISCONTINUED,ROUTE:IV DRIP
     Route: 042
     Dates: start: 20090406, end: 20090623
  4. TRIATEC [Concomitant]
     Route: 065
     Dates: start: 19990101
  5. LASIX [Concomitant]
     Route: 065
     Dates: start: 19990101
  6. FERLIXIT [Concomitant]
     Dates: start: 20090420
  7. LOPEMID [Concomitant]
     Dates: start: 20090430
  8. CO-EFFERALGAN [Concomitant]
     Dosage: TDD: 500+30 MG
     Dates: start: 20090518
  9. PLASIL [Concomitant]
     Dates: start: 20090522, end: 20090522
  10. LANSOX [Concomitant]
     Dates: start: 19990101
  11. VALIUM [Concomitant]
     Dates: start: 20090523
  12. HUMULIN R [Concomitant]
     Dates: start: 20090523

REACTIONS (1)
  - HEMIPARESIS [None]
